FAERS Safety Report 9050599 (Version 1)
Quarter: 2013Q1

REPORT INFORMATION
  Report Type: Spontaneous
  Country: JP (occurrence: JP)
  Receive Date: 20130205
  Receipt Date: 20130205
  Transmission Date: 20140127
  Serious: Yes (Life-Threatening, Hospitalization, Other)
  Sender: FDA-Public Use
  Company Number: JP-009507513-1302JPN001033

PATIENT
  Age: 74 Year
  Sex: Male

DRUGS (1)
  1. JANUVIA TABLETS 50MG [Suspect]
     Dosage: 50 MG, QD
     Route: 048
     Dates: start: 20100716

REACTIONS (5)
  - Loss of consciousness [Recovering/Resolving]
  - Cholelithiasis [Unknown]
  - Cholecystitis [Unknown]
  - Loss of consciousness [Recovering/Resolving]
  - Sialoadenitis [Unknown]
